FAERS Safety Report 16150220 (Version 1)
Quarter: 2019Q2

REPORT INFORMATION
  Report Type: Spontaneous
  Country: US (occurrence: US)
  Receive Date: 20190402
  Receipt Date: 20190402
  Transmission Date: 20190711
  Serious: Yes (Other)
  Sender: FDA-Public Use
  Company Number: None

PATIENT
  Age: 72 Year
  Sex: Male
  Weight: 100.8 kg

DRUGS (17)
  1. VICTOZA [Concomitant]
     Active Substance: LIRAGLUTIDE
  2. LISINOPRIL. [Concomitant]
     Active Substance: LISINOPRIL
  3. VITAMIN B12 [Concomitant]
     Active Substance: CYANOCOBALAMIN
  4. VITAMIN B6 [Concomitant]
     Active Substance: PYRIDOXINE HYDROCHLORIDE
  5. ATORVASTATIN [Concomitant]
     Active Substance: ATORVASTATIN
  6. GLUCOSAMINE CHONDROITIN [Concomitant]
     Active Substance: CHONDROITIN SULFATE (BOVINE)\GLUCOSAMINE HYDROCHLORIDE
  7. CEPHALEXIN. [Concomitant]
     Active Substance: CEPHALEXIN
  8. CAPECITABINE. [Suspect]
     Active Substance: CAPECITABINE
     Indication: COLON CANCER
     Route: 048
     Dates: start: 20181217
  9. NEURONTIN [Concomitant]
     Active Substance: GABAPENTIN
  10. HUMALOG KWIKPEN [Concomitant]
     Active Substance: INSULIN LISPRO
  11. ACTOS [Concomitant]
     Active Substance: PIOGLITAZONE HYDROCHLORIDE
  12. HYDROCHLOROTHIAZIDE. [Concomitant]
     Active Substance: HYDROCHLOROTHIAZIDE
  13. METFORMIN [Concomitant]
     Active Substance: METFORMIN HYDROCHLORIDE
  14. ULTRAM [Concomitant]
     Active Substance: TRAMADOL HYDROCHLORIDE
  15. ASPIRIN. [Concomitant]
     Active Substance: ASPIRIN
  16. LANTUS [Concomitant]
     Active Substance: INSULIN GLARGINE
  17. LANCETS [Concomitant]
     Active Substance: DEVICE

REACTIONS (1)
  - Disease progression [None]
